FAERS Safety Report 7945924-3 (Version None)
Quarter: 2011Q4

REPORT INFORMATION
  Report Type: 
  Country: None (occurrence: None)
  Receive Date: 20111129
  Receipt Date: 20111121
  Transmission Date: 20120403
  Serious: Yes (Other)
  Sender: FDA-Public Use
  Company Number: PHHY2011BR102399

PATIENT
  Sex: Male

DRUGS (5)
  1. METFORMIN HCL [Concomitant]
     Dosage: 500 MG, TID
  2. EXFORGE [Suspect]
     Indication: BLOOD PRESSURE INADEQUATELY CONTROLLED
     Dosage: 1 DF(320/10 MG), DAILY
  3. EXFORGE [Suspect]
     Dosage: 1 DF(320/10 MG), DAILY
     Dates: start: 20111121
  4. SIMVASTATIN [Concomitant]
     Dosage: 1 DF(40 MG), DAILY
  5. ASPIRIN [Concomitant]
     Dosage: 1 DF, DAILY

REACTIONS (4)
  - HYPOKINESIA [None]
  - INFLUENZA [None]
  - HYPERSENSITIVITY [None]
  - BLOOD PRESSURE FLUCTUATION [None]
